FAERS Safety Report 21692092 (Version 1)
Quarter: 2022Q4

REPORT INFORMATION
  Report Type: Spontaneous
  Country: JP (occurrence: JP)
  Receive Date: 20221207
  Receipt Date: 20221207
  Transmission Date: 20230113
  Serious: Yes (Other)
  Sender: FDA-Public Use
  Company Number: JP-PFIZER INC-PV202200114163

PATIENT
  Sex: Male

DRUGS (1)
  1. ENBREL [Suspect]
     Active Substance: ETANERCEPT
     Indication: Product used for unknown indication
     Dosage: 50 MILLIGRAM, Q2WK
     Route: 058
     Dates: start: 2016

REACTIONS (7)
  - Arrhythmia [Unknown]
  - Cardiac disorder [Unknown]
  - Dyspnoea [Unknown]
  - Device failure [Unknown]
  - Device colour issue [Unknown]
  - Poor quality device used [Unknown]
  - Off label use [Unknown]
